FAERS Safety Report 5839636-X (Version None)
Quarter: 2008Q3

REPORT INFORMATION
  Report Type: 
  Country: None (occurrence: None)
  Receive Date: 20080811
  Receipt Date: 20080709
  Transmission Date: 20090109
  Serious: Yes (Hospitalization)
  Sender: FDA-Public Use
  Company Number: JP-JNJFOC-20080701274

PATIENT
  Age: 22 Year
  Sex: Male

DRUGS (4)
  1. TOPINA [Suspect]
     Indication: LENNOX-GASTAUT SYNDROME
     Route: 048
  2. DEPAKENE [Concomitant]
     Indication: LENNOX-GASTAUT SYNDROME
     Route: 048
  3. MYSTAN [Concomitant]
     Indication: LENNOX-GASTAUT SYNDROME
     Route: 048
  4. EPILEO PETIT MAL [Concomitant]
     Indication: LENNOX-GASTAUT SYNDROME
     Route: 048

REACTIONS (6)
  - AFFECTIVE DISORDER [None]
  - CRYING [None]
  - DECREASED ACTIVITY [None]
  - EATING DISORDER [None]
  - GRAND MAL CONVULSION [None]
  - PNEUMONIA ASPIRATION [None]
